FAERS Safety Report 16453412 (Version 1)
Quarter: 2019Q2

REPORT INFORMATION
  Report Type: Spontaneous
  Country: US (occurrence: US)
  Receive Date: 20190619
  Receipt Date: 20190619
  Transmission Date: 20190711
  Serious: No
  Sender: FDA-Public Use
  Company Number: US-ROCHE-2261141

PATIENT

DRUGS (4)
  1. ACTEMRA [Suspect]
     Active Substance: TOCILIZUMAB
     Indication: PRODUCT USED FOR UNKNOWN INDICATION
     Route: 065
     Dates: start: 201702, end: 201703
  2. XELJANZ XR [Concomitant]
     Active Substance: TOFACITINIB CITRATE
     Route: 048
  3. METHOTREXATE. [Concomitant]
     Active Substance: METHOTREXATE
     Dosage: FAILED
     Route: 065
     Dates: start: 201710, end: 201712
  4. EUFLEXXA [Concomitant]
     Active Substance: HYALURONATE SODIUM
     Dosage: FAILED
     Route: 065
     Dates: start: 201703, end: 201704

REACTIONS (2)
  - Drug ineffective [Unknown]
  - No adverse event [Unknown]
